FAERS Safety Report 6890551-2 (Version None)
Quarter: 2010Q3

REPORT INFORMATION
  Report Type: 
  Country: None (occurrence: None)
  Receive Date: 20100731
  Receipt Date: 20081126
  Transmission Date: 20110219
  Serious: No
  Sender: FDA-Public Use
  Company Number: US-PFIZER INC-2008150679

PATIENT
  Age: 59 Year
  Sex: Male
  Weight: 165.53 kg

DRUGS (4)
  1. LOMOTIL [Suspect]
     Indication: DIARRHOEA
     Dosage: UNK
     Dates: start: 20081125
  2. LISINOPRIL [Suspect]
     Dosage: UNK
  3. IMODIUM [Suspect]
     Indication: DIARRHOEA
     Dosage: UNK
  4. METFORMIN HYDROCHLORIDE [Concomitant]
     Dosage: 500 MG, 1X/DAY

REACTIONS (2)
  - BLOOD PRESSURE DECREASED [None]
  - DIARRHOEA [None]
